FAERS Safety Report 7441460-1 (Version None)
Quarter: 2011Q2

REPORT INFORMATION
  Report Type: 
  Country: None (occurrence: None)
  Receive Date: 20110426
  Receipt Date: 20110426
  Transmission Date: 20111010
  Serious: No
  Sender: FDA-Public Use
  Company Number: None

PATIENT
  Age: 73 Year
  Sex: Male
  Weight: 113.6 kg

DRUGS (1)
  1. ADALIMUMAB [Suspect]
     Dosage: 40 MG OTHER SQ
     Route: 058
     Dates: start: 20110315, end: 20110425

REACTIONS (1)
  - HALLUCINATION [None]
